FAERS Safety Report 8012692-9 (Version None)
Quarter: 2011Q4

REPORT INFORMATION
  Report Type: 
  Country: None (occurrence: None)
  Receive Date: 20111223
  Receipt Date: 20111223
  Transmission Date: 20120403
  Serious: Yes (Other)
  Sender: FDA-Public Use
  Company Number: None

PATIENT
  Age: 54 Year
  Sex: Female

DRUGS (7)
  1. REVLIMID [Suspect]
     Indication: MULTIPLE MYELOMA
     Dosage: REVLIMID 25 MG DAILY X21D/28D ORALLY
     Route: 048
     Dates: start: 20111101
  2. AMLODIPINE [Concomitant]
  3. ATENOLOL [Concomitant]
  4. NORTRIPTYLINE HCL [Concomitant]
  5. DEXAMETHASONE [Concomitant]
  6. NORETHINDRONE-ETH ESTRADIOL TRIPHASIC [Concomitant]
  7. ASPIRIN [Concomitant]

REACTIONS (1)
  - MUSCLE SPASMS [None]
